FAERS Safety Report 7046543-6 (Version None)
Quarter: 2010Q4

REPORT INFORMATION
  Report Type: 
  Country: None (occurrence: None)
  Receive Date: 20101015
  Receipt Date: 20101006
  Transmission Date: 20110411
  Serious: Yes (Other)
  Sender: FDA-Public Use
  Company Number: US-BIOGENIDEC-2010BI032409

PATIENT
  Age: 37 Year
  Sex: Female

DRUGS (4)
  1. TYSABRI [Suspect]
     Indication: MULTIPLE SCLEROSIS
     Route: 042
     Dates: start: 20050103, end: 20050101
  2. TYSABRI [Suspect]
     Route: 042
     Dates: start: 20061011
  3. AVONEX [Concomitant]
     Indication: MULTIPLE SCLEROSIS
     Route: 030
     Dates: start: 20000413
  4. AVONEX [Concomitant]
     Route: 030
     Dates: start: 20061001

REACTIONS (1)
  - CRYPTOSPORIDIOSIS INFECTION [None]
